FAERS Safety Report 6134021-8 (Version None)
Quarter: 2009Q1

REPORT INFORMATION
  Report Type: 
  Country: None (occurrence: None)
  Receive Date: 20090217
  Receipt Date: 20081118
  Transmission Date: 20090719
  Serious: No
  Sender: FDA-Public Use
  Company Number: AEUSA200800279

PATIENT
  Age: 59 Year
  Sex: Male
  Weight: 83.9154 kg

DRUGS (6)
  1. PROLASTIN [Suspect]
     Indication: ALPHA-1 ANTI-TRYPSIN DEFICIENCY
     Dosage: 11320 MG; 1X; IV
     Route: 042
     Dates: start: 20030101
  2. DIOVAN /01319601/ [Concomitant]
  3. PAMINE [Concomitant]
  4. LIBRAX /00033301/ [Concomitant]
  5. ADVAIR HFA [Concomitant]
  6. ACIPHEX [Concomitant]

REACTIONS (4)
  - CHILLS [None]
  - FLUSHING [None]
  - HEADACHE [None]
  - PYREXIA [None]
